FAERS Safety Report 7519030-6 (Version None)
Quarter: 2011Q2

REPORT INFORMATION
  Report Type: 
  Country: None (occurrence: None)
  Receive Date: 20110523
  Receipt Date: 20110509
  Transmission Date: 20111010
  Serious: Yes (Hospitalization)
  Sender: FDA-Public Use
  Company Number: 2011MA005604

PATIENT
  Age: 6 Month
  Sex: Male

DRUGS (2)
  1. CLOBETASOL PROPIONATE [Suspect]
     Indication: DERMATITIS DIAPER
  2. PREDNICARBATE [Concomitant]

REACTIONS (3)
  - HEPATIC ENZYME ABNORMAL [None]
  - WHITE BLOOD CELL COUNT INCREASED [None]
  - CUSHING'S SYNDROME [None]
